FAERS Safety Report 7779644-5 (Version None)
Quarter: 2011Q3

REPORT INFORMATION
  Report Type: 
  Country: None (occurrence: None)
  Receive Date: 20110927
  Receipt Date: 20110921
  Transmission Date: 20111222
  Serious: Yes (Death)
  Sender: FDA-Public Use
  Company Number: US-CELGENEUS-163-21660-11071459

PATIENT
  Sex: Male

DRUGS (5)
  1. ALOXI [Concomitant]
     Dosage: .25 MILLIGRAM
     Route: 041
     Dates: start: 20110504, end: 20110620
  2. CARBOPLATIN [Concomitant]
     Dosage: 283 MILLIGRAM
     Route: 041
     Dates: start: 20110506, end: 20110620
  3. ABRAXANE [Suspect]
     Dosage: 418 MILLIGRAM
     Route: 041
     Dates: start: 20110620, end: 20110620
  4. TAXOL [Concomitant]
     Route: 041
     Dates: start: 20110405, end: 20110405
  5. ABRAXANE [Suspect]
     Dosage: 163 MILLIGRAM
     Route: 041
     Dates: start: 20110504, end: 20110518

REACTIONS (1)
  - NON-SMALL CELL LUNG CANCER [None]
